FAERS Safety Report 23992010 (Version 10)
Quarter: 2024Q3

REPORT INFORMATION
  Report Type: Spontaneous
  Country: US (occurrence: US)
  Receive Date: 20240620
  Receipt Date: 20240710
  Transmission Date: 20241017
  Serious: No
  Sender: ROCHE
  Company Number: US-ROCHE-3543638

PATIENT
  Sex: Female
  Weight: 44.32 kg

DRUGS (5)
  1. ROZLYTREK [Suspect]
     Active Substance: ENTRECTINIB
     Indication: Lung carcinoma cell type unspecified stage IV
     Dosage: 3 CAPSULES ONCE A DAY
     Route: 048
  2. ROZLYTREK [Suspect]
     Active Substance: ENTRECTINIB
     Route: 048
  3. ROZLYTREK [Suspect]
     Active Substance: ENTRECTINIB
     Route: 048
  4. ROZLYTREK [Suspect]
     Active Substance: ENTRECTINIB
     Route: 048
  5. DIAZEPAM [Concomitant]
     Active Substance: DIAZEPAM

REACTIONS (4)
  - Malaise [Unknown]
  - Poor quality product administered [Unknown]
  - Product quality issue [Unknown]
  - Product complaint [Unknown]
